FAERS Safety Report 15173075 (Version 1)
Quarter: 2018Q3

REPORT INFORMATION
  Report Type: Spontaneous
  Country: GB (occurrence: GB)
  Receive Date: 20180720
  Receipt Date: 20180720
  Transmission Date: 20181010
  Serious: Yes (Death, Life-Threatening)
  Sender: FDA-Public Use
  Company Number: GB-PERRIGO-18GB007430

PATIENT

DRUGS (1)
  1. PARACETAMOL [Suspect]
     Active Substance: ACETAMINOPHEN
     Indication: PRODUCT USED FOR UNKNOWN INDICATION
     Dosage: UNK
     Route: 065

REACTIONS (10)
  - Overdose [Fatal]
  - Clostridium difficile colitis [Fatal]
  - Haemothorax [Fatal]
  - Pulmonary embolism [Fatal]
  - Acute hepatic failure [Fatal]
  - Intra-abdominal haemorrhage [Fatal]
  - Pneumothorax [Fatal]
  - Keloid scar [Unknown]
  - Transplant failure [Fatal]
  - Bile duct stenosis [Fatal]

NARRATIVE: CASE EVENT DATE: 2010
